FAERS Safety Report 5632291-3 (Version None)
Quarter: 2008Q1

REPORT INFORMATION
  Report Type: 
  Country: None (occurrence: None)
  Receive Date: 20080212
  Receipt Date: 20080129
  Transmission Date: 20080703
  Serious: Yes (Hospitalization)
  Sender: FDA-Public Use
  Company Number: ENT 2007-0244

PATIENT
  Age: 80 Year
  Sex: Female

DRUGS (5)
  1. COMTAN [Suspect]
     Indication: PARKINSON'S DISEASE
     Dosage: 300 MG; 600 MG; 300 MG (100 MG, 3 IN 1 D)
     Route: 048
     Dates: start: 20070801, end: 20070921
  2. COMTAN [Suspect]
     Indication: PARKINSON'S DISEASE
     Dosage: 300 MG; 600 MG; 300 MG (100 MG, 3 IN 1 D)
     Route: 048
     Dates: start: 20070922, end: 20071011
  3. COMTAN [Suspect]
     Indication: PARKINSON'S DISEASE
     Dosage: 300 MG; 600 MG; 300 MG (100 MG, 3 IN 1 D)
     Route: 048
     Dates: start: 20071012
  4. PRAMIPEXOLE DIHYDROCHLORIDE [Concomitant]
  5. CARBIDOPA AND LEVODOPA [Concomitant]

REACTIONS (4)
  - DYSKINESIA [None]
  - FALL [None]
  - FEMORAL NECK FRACTURE [None]
  - NAIL DISCOLOURATION [None]
